FAERS Safety Report 10395078 (Version 2)
Quarter: 2014Q2

REPORT INFORMATION
  Report Type: Spontaneous
  Country: US (occurrence: None)
  Receive Date: 20130328
  Receipt Date: 20140604
  Transmission Date: 20141212
  Serious: Yes (Hospitalization)
  Sender: FDA-Public Use
  Company Number: 20120309CINRY2726

PATIENT
  Age: 19 Year
  Sex: Female

DRUGS (5)
  1. CINRYZE (C1 ESTERASE INHIBITOR (HUMAN)) [Suspect]
     Indication: HEREDITARY ANGIOEDEMA
     Route: 042
     Dates: start: 201008
  2. CINRYZE (C1 ESTERASE INHIBITOR (HUMAN)) [Suspect]
     Indication: PROPHYLAXIS
     Route: 042
     Dates: start: 201008
  3. DANAZOL (DANAZOL) [Concomitant]
  4. TYLENOL (PARACETAMOL) [Concomitant]
  5. ADVIL (MEFENAMIC ACID) [Concomitant]

REACTIONS (5)
  - Hereditary angioedema [None]
  - Stress [None]
  - Nasopharyngitis [None]
  - Condition aggravated [None]
  - Angioedema [None]
